FAERS Safety Report 14637163 (Version 1)
Quarter: 2018Q1

REPORT INFORMATION
  Report Type: Spontaneous
  Country: US (occurrence: US)
  Receive Date: 20180314
  Receipt Date: 20180314
  Transmission Date: 20180509
  Serious: Yes (Death)
  Sender: FDA-Public Use
  Company Number: None

PATIENT
  Age: 45 Year
  Sex: Male
  Weight: 68.49 kg

DRUGS (5)
  1. ATENOLOL. [Concomitant]
     Active Substance: ATENOLOL
  2. LAMOTRIGINE. [Concomitant]
     Active Substance: LAMOTRIGINE
  3. LISINOPRIL. [Concomitant]
     Active Substance: LISINOPRIL
  4. KRATOM [Suspect]
     Active Substance: MITRAGYNINE\HERBALS
     Indication: DRUG DIVERSION
  5. KRATOM [Suspect]
     Active Substance: MITRAGYNINE\HERBALS
     Indication: PRODUCT USED FOR UNKNOWN INDICATION

REACTIONS (2)
  - Accidental death [None]
  - Toxicity to various agents [None]

NARRATIVE: CASE EVENT DATE: 20150706
